FAERS Safety Report 17170168 (Version 1)
Quarter: 2019Q4

REPORT INFORMATION
  Report Type: Spontaneous
  Country: US (occurrence: US)
  Receive Date: 20191218
  Receipt Date: 20191218
  Transmission Date: 20200122
  Serious: No
  Sender: FDA-Public Use
  Company Number: US-HORIZON-DUE-0656-2019

PATIENT
  Age: 60 Year
  Sex: Male

DRUGS (10)
  1. LEXAPRO [Concomitant]
     Active Substance: ESCITALOPRAM OXALATE
  2. DUEXIS [Suspect]
     Active Substance: FAMOTIDINE\IBUPROFEN
     Indication: PRODUCT USED FOR UNKNOWN INDICATION
     Dosage: 1 TAB TID
  3. SPIRONOLACTONE. [Concomitant]
     Active Substance: SPIRONOLACTONE
  4. KOMBIGLYZE XR [Concomitant]
     Active Substance: METFORMIN HYDROCHLORIDE\SAXAGLIPTIN HYDROCHLORIDE
  5. GABAPENTIN. [Concomitant]
     Active Substance: GABAPENTIN
  6. TESTOSTERONE. [Concomitant]
     Active Substance: TESTOSTERONE
  7. OXYBUTYNIN. [Concomitant]
     Active Substance: OXYBUTYNIN CHLORIDE
  8. TAMOXIFEN [Concomitant]
     Active Substance: TAMOXIFEN
  9. HYDRALAZINE [Concomitant]
     Active Substance: HYDRALAZINE HYDROCHLORIDE
  10. AMLODIPINE [Concomitant]
     Active Substance: AMLODIPINE BESYLATE

REACTIONS (1)
  - Abdominal distension [Not Recovered/Not Resolved]

NARRATIVE: CASE EVENT DATE: 201911
